FAERS Safety Report 5535192-4 (Version None)
Quarter: 2007Q4

REPORT INFORMATION
  Report Type: 
  Country: None (occurrence: None)
  Receive Date: 20071206
  Receipt Date: 20071129
  Transmission Date: 20080405
  Serious: Yes (Other)
  Sender: FDA-Public Use
  Company Number: PHEH2007US15319

PATIENT
  Sex: Female

DRUGS (5)
  1. AREDIA [Suspect]
  2. ZOMETA [Suspect]
     Dosage: 4 MG
  3. OXYCONTIN [Concomitant]
  4. RESTORIL [Concomitant]
  5. REVLIMID [Concomitant]

REACTIONS (3)
  - GINGIVAL RECESSION [None]
  - JAW DISORDER [None]
  - OSTEONECROSIS [None]
